FAERS Safety Report 9213302 (Version 1)
Quarter: 2013Q2

REPORT INFORMATION
  Report Type: Spontaneous
  Country: DK (occurrence: DK)
  Receive Date: 20130405
  Receipt Date: 20130405
  Transmission Date: 20140414
  Serious: Yes (Hospitalization)
  Sender: FDA-Public Use
  Company Number: PHHY2013DK029793

PATIENT
  Age: 9 Year
  Sex: Male
  Weight: 27.8 kg

DRUGS (1)
  1. RITALINA [Suspect]
     Indication: ATTENTION DEFICIT/HYPERACTIVITY DISORDER
     Dosage: 25 MG, (10 + 10 + 5 MG), DAILY
     Route: 048
     Dates: start: 20110530, end: 20121204

REACTIONS (2)
  - Migraine [Recovered/Resolved]
  - Convulsion [Recovered/Resolved]
